FAERS Safety Report 8691080 (Version 4)
Quarter: 2013Q2

REPORT INFORMATION
  Report Type: Report from Study
  Country: BR (occurrence: BR)
  Receive Date: 20120730
  Receipt Date: 20130410
  Transmission Date: 20140414
  Serious: Yes (Death, Other)
  Sender: FDA-Public Use
  Company Number: FR-009507513-1008FRA00018

PATIENT
  Age: 54 Year
  Sex: Male
  Weight: 53 kg

DRUGS (18)
  1. ISENTRESS [Suspect]
     Indication: HIV INFECTION
     Dosage: 800 MG, QD
     Route: 048
     Dates: start: 20100630
  2. VIREAD [Suspect]
     Indication: HIV INFECTION
     Dosage: 300 MG, QD
     Route: 048
     Dates: start: 20100630
  3. EPIVIR [Suspect]
     Indication: HIV INFECTION
     Dosage: 300 MG, QD
     Route: 048
     Dates: start: 20100630
  4. RIFAMPIN [Suspect]
     Indication: TUBERCULOSIS
     Dosage: 600 MG, QD
     Route: 048
     Dates: start: 20100522, end: 20100810
  5. ISONIAZID [Suspect]
     Indication: TUBERCULOSIS
     Dosage: 400 MG, QD
     Route: 048
     Dates: start: 20100522, end: 20100810
  6. PYRAZINAMIDE [Suspect]
     Indication: TUBERCULOSIS
     Dosage: 2000 MG, QD
     Route: 048
     Dates: start: 20100522, end: 20100726
  7. ACYCLOVIR [Concomitant]
     Indication: ACARODERMATITIS
     Dosage: 1200 MG, QD
     Dates: start: 20100720, end: 20100728
  8. BACTRIM [Concomitant]
     Indication: PROPHYLAXIS
     Dosage: UNK
     Route: 048
     Dates: start: 20100520, end: 20100726
  9. CIPROFLOXACIN [Suspect]
     Indication: PROSTATISM
     Dosage: 1 G, QD
     Dates: start: 20100715, end: 20100729
  10. AZITHROMYCIN [Concomitant]
     Indication: PROPHYLAXIS
     Dosage: 1.5 G, QD
     Dates: start: 20100611, end: 20100726
  11. FOLINIC ACID [Concomitant]
     Indication: ANAEMIA
     Dosage: 15 MG, QD
     Dates: start: 20100607
  12. FOLINIC ACID [Concomitant]
     Indication: LEUKOPENIA
  13. PYRIDOXINE [Concomitant]
     Indication: PROPHYLAXIS
     Dosage: 25 MG, QD
     Dates: start: 20100614, end: 20100810
  14. OMEPRAZOLE [Concomitant]
     Indication: PROPHYLAXIS
     Dosage: 40 MG, QD
     Route: 048
     Dates: start: 20100520, end: 20100629
  15. IVERMECTIN [Concomitant]
     Indication: ACARODERMATITIS
     Dosage: 12 MG, QD
     Route: 048
     Dates: start: 20100705, end: 20100724
  16. DAPSONE [Suspect]
     Indication: PROPHYLAXIS
     Dosage: 100 MG, QD
     Dates: start: 20110115
  17. KALETRA [Suspect]
     Indication: HIV INFECTION
     Dosage: 20
     Route: 048
     Dates: start: 20101122, end: 20101126
  18. ETHAMBUTOL HYDROCHLORIDE [Suspect]

REACTIONS (7)
  - Death [Fatal]
  - Leukopenia [Recovered/Resolved]
  - Drug eruption [Recovered/Resolved with Sequelae]
  - Neutropenia [Recovered/Resolved with Sequelae]
  - Anaemia [Unknown]
  - Aspartate aminotransferase increased [Recovered/Resolved]
  - Stevens-Johnson syndrome [Recovered/Resolved]
